FAERS Safety Report 9427815 (Version 1)
Quarter: 2013Q3

REPORT INFORMATION
  Report Type: Report from Study
  Country: US (occurrence: US)
  Receive Date: 20130730
  Receipt Date: 20130730
  Transmission Date: 20140515
  Serious: No
  Sender: FDA-Public Use
  Company Number: US-ABBOTT-12P-163-0998499-00

PATIENT
  Age: 59 Year
  Sex: Male

DRUGS (1)
  1. NIASPAN (COATED) [Suspect]
     Indication: PRODUCT USED FOR UNKNOWN INDICATION
     Dosage: 2 TABLETS, AT BEDTIME
     Route: 048

REACTIONS (3)
  - Myalgia [Not Recovered/Not Resolved]
  - Dizziness [Unknown]
  - Blood glucose increased [Unknown]
